FAERS Safety Report 6446989-0 (Version None)
Quarter: 2009Q4

REPORT INFORMATION
  Report Type: 
  Country: None (occurrence: None)
  Receive Date: 20091119
  Receipt Date: 20091110
  Transmission Date: 20100525
  Serious: Yes (Other)
  Sender: FDA-Public Use
  Company Number: JP-PFIZER INC-2009297041

PATIENT
  Age: 46 Year
  Sex: Female

DRUGS (1)
  1. ZOLOFT [Suspect]
     Dosage: 25 MG/DAY
     Route: 048
     Dates: start: 20090818

REACTIONS (2)
  - APHASIA [None]
  - DYSARTHRIA [None]
